FAERS Safety Report 13573057 (Version 4)
Quarter: 2017Q2

REPORT INFORMATION
  Report Type: Spontaneous
  Country: JP (occurrence: JP)
  Receive Date: 20170523
  Receipt Date: 20170620
  Transmission Date: 20170830
  Serious: Yes (Hospitalization, Other)
  Sender: FDA-Public Use
  Company Number: JP-PFIZER INC-2017149927

PATIENT
  Age: 76 Year
  Sex: Male

DRUGS (3)
  1. LASIX [Suspect]
     Active Substance: FUROSEMIDE
     Indication: POLYURIA
     Dosage: 20 MG, ONCE DAILY
     Route: 048
     Dates: start: 20161116, end: 20170402
  2. ATELEC [Suspect]
     Active Substance: CILNIDIPINE
     Indication: HYPERTENSION
     Dosage: 5 MG, ONCE DAILY
     Route: 048
     Dates: start: 20170111, end: 20170402
  3. SUTENT [Suspect]
     Active Substance: SUNITINIB MALATE
     Indication: METASTATIC RENAL CELL CARCINOMA
     Dosage: 50 MG, CYCLIC (DAILY ON A REGIMEN OF 2-WEEK-ON AND 1-WEEK-OFF)
     Route: 048
     Dates: start: 20170403, end: 20170413

REACTIONS (4)
  - Pneumonia [Unknown]
  - Condition aggravated [Recovered/Resolved]
  - Interstitial lung disease [Recovered/Resolved]
  - Renal impairment [Unknown]

NARRATIVE: CASE EVENT DATE: 20170413
